FAERS Safety Report 6809523-9 (Version None)
Quarter: 2010Q2

REPORT INFORMATION
  Report Type: 
  Country: None (occurrence: None)
  Receive Date: 20100630
  Receipt Date: 20100616
  Transmission Date: 20101027
  Serious: Yes (Hospitalization)
  Sender: FDA-Public Use
  Company Number: PHFR2010GB00500

PATIENT
  Sex: Female
  Weight: 78.5 kg

DRUGS (7)
  1. CLOZARIL [Suspect]
     Indication: SCHIZOPHRENIA
     Dosage: 275 MG/DAY
     Route: 048
     Dates: start: 20100408, end: 20100424
  2. TRIHEXYPHENIDYL HCL [Concomitant]
     Indication: EXTRAPYRAMIDAL DISORDER
     Dosage: 2.5 MG, BID
     Route: 048
     Dates: start: 20090611, end: 20100423
  3. NULYTELY [Concomitant]
     Indication: CONSTIPATION
     Dosage: DF QD
     Route: 048
     Dates: start: 20100416, end: 20100524
  4. SALBUTAMOL [Concomitant]
     Indication: ASTHMA
     Dosage: DF QDS
     Dates: start: 20090625, end: 20100524
  5. SALBUTAMOL [Concomitant]
     Indication: DYSPNOEA
  6. ACETAMINOPHEN [Concomitant]
     Indication: PAIN
     Dosage: 1 G, QID
     Route: 048
     Dates: start: 20100401
  7. ACETAMINOPHEN [Concomitant]
     Indication: PYREXIA

REACTIONS (9)
  - ASTHENIA [None]
  - BLOOD CREATINE PHOSPHOKINASE INCREASED [None]
  - C-REACTIVE PROTEIN INCREASED [None]
  - CIRCULATORY COLLAPSE [None]
  - INFECTION [None]
  - LOWER RESPIRATORY TRACT INFECTION [None]
  - NEUROLEPTIC MALIGNANT SYNDROME [None]
  - PYREXIA [None]
  - SEPSIS [None]
